FAERS Safety Report 6668170-2 (Version None)
Quarter: 2010Q2

REPORT INFORMATION
  Report Type: 
  Country: None (occurrence: None)
  Receive Date: 20100406
  Receipt Date: 20100331
  Transmission Date: 20101027
  Serious: Yes (Death)
  Sender: FDA-Public Use
  Company Number: US-ASTRAZENECA-2008UW09557

PATIENT
  Sex: Female

DRUGS (4)
  1. SEROQUEL [Suspect]
     Dosage: 100-200 MG DAILY
     Route: 048
     Dates: start: 20031211
  2. ALPRAZOLAM [Concomitant]
     Indication: ANXIETY
     Dates: start: 20040114
  3. VISTARIL [Concomitant]
     Indication: ANXIETY
     Dates: start: 20040714
  4. VISTARIL [Concomitant]
     Indication: PRURITUS
     Dates: start: 20040714

REACTIONS (2)
  - DEATH [None]
  - DIABETES MELLITUS [None]
